FAERS Safety Report 14929433 (Version 1)
Quarter: 2018Q2

REPORT INFORMATION
  Report Type: Spontaneous
  Country: US (occurrence: US)
  Receive Date: 20180523
  Receipt Date: 20180523
  Transmission Date: 20180711
  Serious: Yes (Life-Threatening, Hospitalization)
  Sender: FDA-Public Use
  Company Number: US-BIOMARINAP-US-2018-118215

PATIENT
  Age: 39 Year
  Sex: Female

DRUGS (2)
  1. LEVETIRACETAM. [Concomitant]
     Active Substance: LEVETIRACETAM
     Indication: PRODUCT USED FOR UNKNOWN INDICATION
  2. KUVAN [Suspect]
     Active Substance: SAPROPTERIN DIHYDROCHLORIDE
     Indication: TETRAHYDROBIOPTERIN DEFICIENCY
     Dosage: 100 MG, UNK
     Route: 048

REACTIONS (8)
  - Vomiting [Recovering/Resolving]
  - Off label use [Unknown]
  - Asthenia [Unknown]
  - Gastrointestinal disorder [Unknown]
  - Nausea [Recovering/Resolving]
  - Secretion discharge [Unknown]
  - Pneumonia [Recovering/Resolving]
  - Respiratory tract infection [Recovering/Resolving]

NARRATIVE: CASE EVENT DATE: 20180501
